FAERS Safety Report 17336560 (Version 2)
Quarter: 2020Q1

REPORT INFORMATION
  Report Type: Spontaneous
  Country: US (occurrence: US)
  Receive Date: 20200128
  Receipt Date: 20200219
  Transmission Date: 20200409
  Serious: Yes (Hospitalization)
  Sender: FDA-Public Use
  Company Number: US-VERTEX PHARMACEUTICALS-2020-001358

PATIENT
  Age: 31 Year
  Sex: Male
  Weight: 85 kg

DRUGS (10)
  1. ALBUTEROL [SALBUTAMOL] [Concomitant]
     Active Substance: ALBUTEROL
     Dosage: UNK, BID
  2. ACTIGALL [Concomitant]
     Active Substance: URSODIOL
  3. PULMOZYME [Concomitant]
     Active Substance: DORNASE ALFA
  4. ADVAIR HFA [Concomitant]
     Active Substance: FLUTICASONE PROPIONATE\SALMETEROL XINAFOATE
     Dosage: UNK, BID
  5. TRIKAFTA [Suspect]
     Active Substance: ELEXACAFTOR\IVACAFTOR\TEZACAFTOR
     Indication: CYSTIC FIBROSIS
     Dosage: 2 ORANGE TABS AM
     Route: 048
  6. AZI [Concomitant]
     Dosage: M,W, F
  7. PEPCID [Concomitant]
     Active Substance: FAMOTIDINE
     Dosage: UNK, BID
  8. KITABIS PAK [Concomitant]
     Active Substance: TOBRAMYCIN
     Dosage: UNK, BID
  9. ZENPEP [Concomitant]
     Active Substance: PANCRELIPASE AMYLASE\PANCRELIPASE LIPASE\PANCRELIPASE PROTEASE
     Dosage: UNK, TID
  10. LORATADINE. [Concomitant]
     Active Substance: LORATADINE
     Dosage: UNK, QD

REACTIONS (2)
  - Hepatic enzyme increased [Recovering/Resolving]
  - Infective pulmonary exacerbation of cystic fibrosis [Unknown]

NARRATIVE: CASE EVENT DATE: 202001
